FAERS Safety Report 5522459-9 (Version None)
Quarter: 2007Q4

REPORT INFORMATION
  Report Type: 
  Country: None (occurrence: None)
  Receive Date: 20071120
  Receipt Date: 20071108
  Transmission Date: 20080405
  Serious: Yes (Other)
  Sender: FDA-Public Use
  Company Number: US-PFIZER INC-2007012611

PATIENT
  Sex: Female
  Weight: 4.243 kg

DRUGS (5)
  1. VIRACEPT [Suspect]
     Indication: HIV TEST POSITIVE
     Dosage: DAILY DOSE:2500MG
     Route: 048
  2. VIRACEPT [Suspect]
     Dosage: DAILY DOSE:2500MG
     Route: 048
  3. LAMIVUDINE + ZIDOVUDINE [Suspect]
     Dosage: DAILY DOSE:900MG
     Route: 048
  4. LAMIVUDINE + ZIDOVUDINE [Suspect]
     Dosage: DAILY DOSE:400MG
     Route: 048
  5. ZIDOVUDINE [Suspect]
     Route: 042

REACTIONS (2)
  - DRUG EXPOSURE DURING PREGNANCY [None]
  - SHOULDER DYSTOCIA [None]
